FAERS Safety Report 5643798-7 (Version None)
Quarter: 2008Q1

REPORT INFORMATION
  Report Type: 
  Country: None (occurrence: None)
  Receive Date: 20080228
  Receipt Date: 20080221
  Transmission Date: 20080703
  Serious: Yes (Other)
  Sender: FDA-Public Use
  Company Number: GB-MERCK-0802GBR00086

PATIENT
  Age: 24 Month
  Sex: Male
  Weight: 14 kg

DRUGS (5)
  1. SINGULAIR [Suspect]
     Indication: ASTHMA
     Route: 048
     Dates: start: 20070101, end: 20070101
  2. SINGULAIR [Suspect]
     Route: 048
     Dates: start: 20071001, end: 20071001
  3. SINGULAIR [Suspect]
     Indication: WHEEZING
     Route: 048
     Dates: start: 20070101, end: 20070101
  4. SINGULAIR [Suspect]
     Route: 048
     Dates: start: 20071001, end: 20071001
  5. PREDNISOLONE [Concomitant]
     Route: 048

REACTIONS (2)
  - ABNORMAL BEHAVIOUR [None]
  - HALLUCINATION [None]
